FAERS Safety Report 9373017 (Version 4)
Quarter: 2013Q4

REPORT INFORMATION
  Report Type: Spontaneous
  Country: BR (occurrence: BR)
  Receive Date: 20130627
  Receipt Date: 20131015
  Transmission Date: 20140711
  Serious: Yes (Hospitalization, Other)
  Sender: FDA-Public Use
  Company Number: BR-ASTRAZENECA-2013SE48350

PATIENT
  Age: 23250 Day
  Sex: Male
  Weight: 95 kg

DRUGS (9)
  1. NEXIUM [Suspect]
     Indication: GASTRITIS
     Dosage: DAILY
     Route: 048
     Dates: start: 2012
  2. NEXIUM [Suspect]
     Indication: GASTRITIS PROPHYLAXIS
     Dosage: DAILY
     Route: 048
     Dates: start: 2012
  3. BRILINTA [Suspect]
     Indication: MYOCARDIAL INFARCTION
     Route: 048
     Dates: start: 20130620, end: 201307
  4. UNSPECIFIED CORTICOSTEROID [Suspect]
     Route: 065
     Dates: start: 201307, end: 201307
  5. GALVUS MET [Concomitant]
     Indication: DIABETES MELLITUS
  6. SOMALGIN CARDIO [Concomitant]
  7. BENERVA [Concomitant]
  8. LOSARTAN [Concomitant]
  9. INSULIN NPH [Concomitant]
     Indication: DIABETES MELLITUS

REACTIONS (6)
  - Myocardial infarction [Recovered/Resolved]
  - Pericarditis [Recovered/Resolved]
  - Pleural effusion [Recovered/Resolved]
  - Pericardial effusion [Recovered/Resolved]
  - Hyperglycaemia [Unknown]
  - Dyspnoea [Not Recovered/Not Resolved]
